FAERS Safety Report 5441506-6 (Version None)
Quarter: 2007Q3

REPORT INFORMATION
  Report Type: 
  Country: None (occurrence: None)
  Receive Date: 20070904
  Receipt Date: 20070824
  Transmission Date: 20080115
  Serious: Yes (Hospitalization)
  Sender: FDA-Public Use
  Company Number: GB-AMGEN-US240309

PATIENT
  Sex: Female

DRUGS (2)
  1. ENBREL [Suspect]
     Indication: RHEUMATOID ARTHRITIS
     Dates: start: 20070601, end: 20070801
  2. METHOTREXATE [Concomitant]
     Dosage: UNKNOWN

REACTIONS (1)
  - CEREBROVASCULAR ACCIDENT [None]
